FAERS Safety Report 11279569 (Version 2)
Quarter: 2025Q2

REPORT INFORMATION
  Report Type: Report from Study
  Country: JP (occurrence: JP)
  Receive Date: 20150717
  Receipt Date: 20250521
  Transmission Date: 20250717
  Serious: Yes (Other)
  Sender: VIIV
  Company Number: JP-VIIVHC-BA201309381002

PATIENT

DRUGS (19)
  1. COMBIVIR [Suspect]
     Active Substance: LAMIVUDINE\ZIDOVUDINE
     Indication: HIV infection
     Route: 048
  2. COMBIVIR [Suspect]
     Active Substance: LAMIVUDINE\ZIDOVUDINE
     Dosage: 2 DF, 1D
     Route: 048
     Dates: start: 20020523, end: 20030522
  3. COMBIVIR [Suspect]
     Active Substance: LAMIVUDINE\ZIDOVUDINE
     Dosage: 2 DF, 1D
     Route: 048
     Dates: start: 20090401, end: 20111124
  4. MARAVIROC [Suspect]
     Active Substance: MARAVIROC
     Indication: HIV infection
     Dosage: 300 MG, 1D
     Route: 048
     Dates: start: 20111125, end: 20160812
  5. TIVICAY [Suspect]
     Active Substance: DOLUTEGRAVIR SODIUM
     Indication: HIV infection
     Dosage: 50 MG, 1D
     Route: 048
     Dates: end: 20190630
  6. DARUNAVIR [Suspect]
     Active Substance: DARUNAVIR
     Indication: HIV infection
     Dosage: 800 MG, QD
     Route: 048
     Dates: start: 20111125, end: 20131220
  7. DARUNAVIR [Suspect]
     Active Substance: DARUNAVIR
     Dosage: 800 MG, QD
     Route: 048
     Dates: start: 20131221, end: 20140426
  8. ISENTRESS [Suspect]
     Active Substance: RALTEGRAVIR POTASSIUM
     Indication: HIV infection
     Dosage: 800 MG, 1D
     Route: 048
     Dates: start: 20100604, end: 20160812
  9. TRUVADA [Suspect]
     Active Substance: EMTRICITABINE\TENOFOVIR DISOPROXIL FUMARATE
     Indication: HIV infection
     Dosage: 1 DF, 1D
     Route: 048
     Dates: start: 20140427, end: 20170503
  10. NORVIR [Suspect]
     Active Substance: RITONAVIR
     Indication: HIV infection
     Route: 048
     Dates: start: 20111125, end: 20140426
  11. CRESTOR [Suspect]
     Active Substance: ROSUVASTATIN CALCIUM
     Indication: Dyslipidaemia
     Dosage: 2.5 MG, QD
     Route: 048
     Dates: start: 20170119, end: 20170317
  12. DESCOVY [Concomitant]
     Active Substance: EMTRICITABINE\TENOFOVIR ALAFENAMIDE FUMARATE
     Indication: HIV infection
     Dosage: 1 DF, 1D
     Dates: start: 20170504, end: 20190630
  13. BIKTARVY [Concomitant]
     Active Substance: BICTEGRAVIR SODIUM\EMTRICITABINE\TENOFOVIR ALAFENAMIDE FUMARATE
     Indication: HIV infection
     Dosage: 1 DF, 1D
     Route: 048
     Dates: start: 20190701
  14. OPALMON [Concomitant]
     Active Substance: LIMAPROST
     Dates: start: 20220510, end: 202208
  15. PREGABALIN [Concomitant]
     Active Substance: PREGABALIN
     Dates: start: 20220510, end: 20220518
  16. MIROGABALIN BESYLATE [Concomitant]
     Active Substance: MIROGABALIN BESYLATE
     Dates: start: 20220622, end: 20230130
  17. CELECOXIB [Concomitant]
     Active Substance: CELECOXIB
     Dates: start: 20220706, end: 20220830
  18. REBAMIPIDE [Concomitant]
     Active Substance: REBAMIPIDE
     Dates: start: 20220706
  19. LOXOPROFEN SODIUM [Concomitant]
     Active Substance: LOXOPROFEN SODIUM
     Dates: start: 20220831

REACTIONS (6)
  - Lipodystrophy acquired [Unknown]
  - Hepatic steatosis [Not Recovered/Not Resolved]
  - Drug-induced liver injury [Recovered/Resolved]
  - Hypertriglyceridaemia [Recovering/Resolving]
  - Hypertriglyceridaemia [Recovering/Resolving]
  - Spinal osteoarthritis [Recovering/Resolving]

NARRATIVE: CASE EVENT DATE: 20120323
